FAERS Safety Report 25755012 (Version 3)
Quarter: 2025Q4

REPORT INFORMATION
  Report Type: Report from Study
  Country: MX (occurrence: MX)
  Receive Date: 20250903
  Receipt Date: 20251104
  Transmission Date: 20260117
  Serious: Yes (Other)
  Sender: TAKEDA
  Company Number: MX-TAKEDA-2025TUS077110

PATIENT
  Age: 49 Year
  Sex: Female

DRUGS (2)
  1. VEDOLIZUMAB [Suspect]
     Active Substance: VEDOLIZUMAB
     Indication: Colitis ulcerative
     Dosage: 300 MILLIGRAM
  2. AZATHIOPRINE [Concomitant]
     Active Substance: AZATHIOPRINE
     Dosage: UNK

REACTIONS (7)
  - Rectal haemorrhage [Unknown]
  - Frequent bowel movements [Unknown]
  - Pain [Not Recovered/Not Resolved]
  - Anorectal discomfort [Unknown]
  - Constipation [Unknown]
  - Oropharyngeal pain [Recovered/Resolved]
  - Dysphagia [Recovered/Resolved]

NARRATIVE: CASE EVENT DATE: 20250826
